FAERS Safety Report 26019622 (Version 1)
Quarter: 2025Q4

REPORT INFORMATION
  Report Type: Spontaneous
  Country: CN (occurrence: CN)
  Receive Date: 20251110
  Receipt Date: 20251110
  Transmission Date: 20260118
  Serious: Yes (Hospitalization)
  Sender: ALEXION PHARMACEUTICALS
  Company Number: CN-ASTRAZENECA-202511CHN000960CN

PATIENT
  Age: 46 Year
  Sex: Male
  Weight: 65.5 kg

DRUGS (3)
  1. BRILINTA [Suspect]
     Active Substance: TICAGRELOR
     Indication: Acute myocardial infarction
     Dosage: 90.000000 MILLIGRAM,2 TIMES 1 DAY
     Dates: start: 20251016, end: 20251022
  2. ASPIRIN [Suspect]
     Active Substance: ASPIRIN
     Indication: Acute myocardial infarction
     Dosage: 0.100000 GRAM,1 TIMES 1 DAY
  3. HEPARIN SODIUM [Suspect]
     Active Substance: HEPARIN SODIUM
     Indication: Acute myocardial infarction
     Dosage: UNK
     Dates: start: 20251016, end: 20251017

REACTIONS (3)
  - Injection site haemorrhage [Recovering/Resolving]
  - Haematochezia [Recovering/Resolving]
  - Abdominal discomfort [Recovering/Resolving]

NARRATIVE: CASE EVENT DATE: 20251017
